FAERS Safety Report 10568040 (Version 1)
Quarter: 2014Q4

REPORT INFORMATION
  Report Type: Spontaneous
  Country: CH (occurrence: None)
  Receive Date: 20141104
  Receipt Date: 20141104
  Transmission Date: 20150529
  Serious: Yes (Other)
  Sender: FDA-Public Use
  Company Number: 2014-20639

PATIENT
  Age: 80 Year
  Sex: Female

DRUGS (3)
  1. INFLANAC(DICLOFENAC SODIUM) [Concomitant]
  2. EYLEA [Suspect]
     Active Substance: AFLIBERCEPT
     Indication: AGE-RELATED MACULAR DEGENERATION
     Route: 031
     Dates: start: 20140707, end: 20140707
  3. PRAVASTATIN [Concomitant]
     Active Substance: PRAVASTATIN\PRAVASTATIN SODIUM

REACTIONS (9)
  - Pruritus [None]
  - Walking disability [None]
  - Palmar-plantar erythrodysaesthesia syndrome [None]
  - Skin burning sensation [None]
  - Sensory disturbance [None]
  - Oedema peripheral [None]
  - Pain in extremity [None]
  - Rash [None]
  - Skin test negative [None]

NARRATIVE: CASE EVENT DATE: 201405
